FAERS Safety Report 19280124 (Version 1)
Quarter: 2021Q2

REPORT INFORMATION
  Report Type: Spontaneous
  Country: PL (occurrence: PT)
  Receive Date: 20210520
  Receipt Date: 20210520
  Transmission Date: 20210717
  Serious: Yes (Other)
  Sender: FDA-Public Use
  Company Number: PL-ACCORD-225630

PATIENT
  Sex: Male
  Weight: 59 kg

DRUGS (3)
  1. 5?FLUOROURACIL?EBEWE [Suspect]
     Active Substance: FLUOROURACIL
     Indication: COLON CANCER
     Dosage: DOSE: 672 MG 1008 MG
     Route: 042
     Dates: start: 20180312, end: 20180314
  2. LEUCOVORIN. [Concomitant]
     Active Substance: LEUCOVORIN
     Dates: start: 20180312, end: 20180314
  3. OXALIPLATIN ACCORD [Suspect]
     Active Substance: OXALIPLATIN
     Indication: COLON CANCER
     Route: 042
     Dates: start: 20180312

REACTIONS (1)
  - Mucosal disorder [Unknown]

NARRATIVE: CASE EVENT DATE: 20180326
